FAERS Safety Report 13229267 (Version 1)
Quarter: 2017Q1

REPORT INFORMATION
  Report Type: Other
  Country: US (occurrence: US)
  Receive Date: 20170214
  Receipt Date: 20170214
  Transmission Date: 20170428
  Serious: Yes (Hospitalization)
  Sender: FDA-Public Use
  Company Number: US-GRANULES INDIA LIMITED-1062683

PATIENT
  Age: 37 Year
  Sex: Male

DRUGS (5)
  1. OLANZAPINE. [Concomitant]
     Active Substance: OLANZAPINE
  2. HALOPERIDOL. [Concomitant]
     Active Substance: HALOPERIDOL
  3. LISINOPRIL. [Concomitant]
     Active Substance: LISINOPRIL
  4. AMLODIPINE [Concomitant]
     Active Substance: AMLODIPINE BESYLATE
  5. IBUPROFEN. [Suspect]
     Active Substance: IBUPROFEN

REACTIONS (8)
  - Intentional overdose [Unknown]
  - Acute myocardial infarction [Unknown]
  - Thrombotic thrombocytopenic purpura [Recovering/Resolving]
  - Drug screen positive [Unknown]
  - Suicide attempt [Unknown]
  - Sinus tachycardia [Unknown]
  - Cerebral infarction [Unknown]
  - Cerebrovascular accident [Unknown]
